FAERS Safety Report 11800365 (Version 3)
Quarter: 2016Q1

REPORT INFORMATION
  Report Type: Spontaneous
  Country: JP (occurrence: JP)
  Receive Date: 20151203
  Receipt Date: 20160216
  Transmission Date: 20160525
  Serious: Yes (Death, Other)
  Sender: FDA-Public Use
  Company Number: JP-GILEAD-2015-0184478

PATIENT
  Age: 79 Year
  Sex: Female
  Weight: 72.15 kg

DRUGS (10)
  1. COPEGUS [Suspect]
     Active Substance: RIBAVIRIN
     Indication: CHRONIC HEPATITIS C
     Dosage: 1 DF, BID
     Route: 048
     Dates: start: 20151106, end: 20151119
  2. DIART [Concomitant]
     Active Substance: AZOSEMIDE
     Indication: PULMONARY HYPERTENSION
     Dosage: UNK
     Route: 065
     Dates: start: 2012, end: 20151106
  3. EBRANTIL                           /00631801/ [Concomitant]
     Active Substance: URAPIDIL
     Indication: NEUROGENIC BLADDER
     Dosage: 4 DF, QD
     Route: 048
  4. ALDACTONE A [Concomitant]
     Active Substance: SPIRONOLACTONE
     Dosage: 1 DF, QD
     Route: 048
     Dates: start: 20151118, end: 20151119
  5. DIART [Concomitant]
     Active Substance: AZOSEMIDE
     Indication: LYMPHOEDEMA
  6. LIVACT                             /00847901/ [Concomitant]
     Active Substance: ISOLEUCINE\LEUCINE\VALINE
     Indication: HYPOALBUMINAEMIA
     Dosage: 3 PACKS, QD
     Route: 048
     Dates: start: 20150901, end: 20151119
  7. SOVALDI [Suspect]
     Active Substance: SOFOSBUVIR
     Indication: CHRONIC HEPATITIS C
     Dosage: 400 MG, QD
     Route: 048
     Dates: start: 20151106, end: 20151119
  8. ALDACTONE A [Concomitant]
     Active Substance: SPIRONOLACTONE
     Indication: PULMONARY HYPERTENSION
     Dosage: 1 DF, QD
     Route: 048
     Dates: start: 20151107, end: 20151109
  9. ALDACTONE A [Concomitant]
     Active Substance: SPIRONOLACTONE
     Indication: LYMPHOEDEMA
     Dosage: 2 DF, QD
     Route: 048
     Dates: start: 20151110, end: 20151117
  10. IRBETAN [Concomitant]
     Active Substance: IRBESARTAN
     Indication: HYPERTENSION
     Dosage: 0.5 DF, QHS
     Route: 048

REACTIONS (3)
  - Atrial fibrillation [Unknown]
  - Cardiac failure acute [Fatal]
  - Pyrexia [Unknown]

NARRATIVE: CASE EVENT DATE: 20151109
